FAERS Safety Report 10258047 (Version 1)
Quarter: 2014Q2

REPORT INFORMATION
  Report Type: Spontaneous
  Country: US (occurrence: US)
  Receive Date: 20140625
  Receipt Date: 20140625
  Transmission Date: 20141212
  Serious: No
  Sender: FDA-Public Use
  Company Number: US-PFIZER INC-2014174613

PATIENT
  Age: 63 Year
  Sex: Female

DRUGS (4)
  1. EFFEXOR [Suspect]
     Dosage: UNK
  2. ALPRAZOLAM [Suspect]
     Dosage: UNK, PRN
  3. METHYLIN ER [Suspect]
     Dosage: UNK
  4. SEROQUEL XL [Suspect]
     Dosage: 300 MG, UNK

REACTIONS (1)
  - Drug hypersensitivity [Unknown]
